FAERS Safety Report 18273423 (Version 3)
Quarter: 2021Q1

REPORT INFORMATION
  Report Type: Report from Study
  Country: US (occurrence: US)
  Receive Date: 20200916
  Receipt Date: 20210208
  Transmission Date: 20210419
  Serious: No
  Sender: FDA-Public Use
  Company Number: NVSC2020US252750

PATIENT
  Sex: Male

DRUGS (1)
  1. COSENTYX [Suspect]
     Active Substance: SECUKINUMAB
     Indication: PSORIASIS
     Dosage: 300 MG, QMO (Q28 DAYS)
     Route: 058

REACTIONS (4)
  - Inappropriate schedule of product administration [Unknown]
  - Psoriasis [Unknown]
  - Product storage error [Unknown]
  - Sinusitis [Unknown]
